FAERS Safety Report 4469762-1 (Version None)
Quarter: 2004Q4

REPORT INFORMATION
  Report Type: 
  Country: None (occurrence: None)
  Receive Date: 20041005
  Receipt Date: 20040927
  Transmission Date: 20050328
  Serious: Yes (Death)
  Sender: FDA-Public Use
  Company Number: 2004AC00397

PATIENT
  Age: 24 Month
  Sex: Male

DRUGS (1)
  1. QUETIAPINE [Suspect]
     Indication: SCHIZOPHRENIA
     Dosage: FORCED ADMINISTRATION

REACTIONS (8)
  - CONJUNCTIVAL HAEMORRHAGE [None]
  - CONTUSION [None]
  - EXCORIATION [None]
  - INJURY ASPHYXIATION [None]
  - MEDICATION ERROR [None]
  - MOUTH INJURY [None]
  - OVERDOSE [None]
  - PETECHIAE [None]
